FAERS Safety Report 12880342 (Version 2)
Quarter: 2016Q4

REPORT INFORMATION
  Report Type: Spontaneous
  Country: US (occurrence: US)
  Receive Date: 20161025
  Receipt Date: 20161222
  Transmission Date: 20170207
  Serious: No
  Sender: FDA-Public Use
  Company Number: US-PFIZER INC-2016489346

PATIENT
  Age: 7 Decade
  Sex: Female
  Weight: 86 kg

DRUGS (8)
  1. LYRICA [Suspect]
     Active Substance: PREGABALIN
     Indication: NEUROPATHY PERIPHERAL
     Dosage: 50 MG, 2X/DAY
     Route: 048
  2. SODIUM BICARBONATE. [Concomitant]
     Active Substance: SODIUM BICARBONATE
     Indication: GOUT
  3. BAYER ASPIRIN [Concomitant]
     Active Substance: ASPIRIN
     Indication: CARDIAC DISORDER
     Dosage: 81 MG, 1X/DAY
  4. SODIUM BICARBONATE. [Concomitant]
     Active Substance: SODIUM BICARBONATE
     Indication: CHEST DISCOMFORT
     Dosage: 650 MG, 2X/DAY, ONE IN THE MORNING AND ONE AT NIGHT
  5. VALSARTAN. [Concomitant]
     Active Substance: VALSARTAN
     Indication: BLOOD PRESSURE ABNORMAL
     Dosage: 80 MG, 1X/DAY
  6. CITRACAL-D [Concomitant]
     Indication: SUPPLEMENTATION THERAPY
     Dosage: UNK
  7. LYRICA [Suspect]
     Active Substance: PREGABALIN
     Dosage: 150 MG, 1X/DAY
     Route: 048
  8. IBANDRONATE SODIUM. [Concomitant]
     Active Substance: IBANDRONATE SODIUM
     Indication: OSTEOPOROSIS
     Dosage: 150 MG, MONTHLY

REACTIONS (3)
  - Blood creatinine increased [Unknown]
  - Drug ineffective [Unknown]
  - Weaning failure [Unknown]
